FAERS Safety Report 8571136-9 (Version None)
Quarter: 2012Q3

REPORT INFORMATION
  Report Type: 
  Country: None (occurrence: None)
  Receive Date: 20120806
  Receipt Date: 20120801
  Transmission Date: 20120928
  Serious: No
  Sender: FDA-Public Use
  Company Number: US-PFIZER INC-2012188084

PATIENT
  Age: 68 Year
  Sex: Female
  Weight: 62.59 kg

DRUGS (4)
  1. ASPIRIN [Concomitant]
     Indication: BLOOD PRESSURE ABNORMAL
     Dosage: 81 MG, UNK
  2. CELEBREX [Suspect]
     Indication: ARTHRITIS
     Dosage: 50 MG, DAILY
     Route: 048
     Dates: start: 20120101, end: 20120101
  3. CELEBREX [Suspect]
     Indication: NERVE INJURY
  4. BENICAR [Concomitant]
     Indication: BLOOD PRESSURE ABNORMAL
     Dosage: 20 MG, DAILY

REACTIONS (4)
  - NAUSEA [None]
  - ABDOMINAL DISCOMFORT [None]
  - VOMITING [None]
  - HEADACHE [None]
